FAERS Safety Report 9514555 (Version 1)
Quarter: 2013Q1

REPORT INFORMATION
  Report Type: Spontaneous
  Country: US (occurrence: None)
  Receive Date: 20130305
  Receipt Date: 20130305
  Transmission Date: 20140127
  Serious: Yes (Other)
  Sender: FDA-Public Use
  Company Number: 163-21880-12091276

PATIENT
  Age: 56 Year
  Sex: Male

DRUGS (4)
  1. REVLIMID [Suspect]
     Dosage: 10 MG, 21 IN 21 D, PO
     Route: 048
     Dates: start: 20120327, end: 2012
  2. FLAGYL (METRONIDAZOLE) [Concomitant]
  3. CULTURELLE (CULTURELLE) [Concomitant]
  4. NEUROTIN (GABAPENTIN) [Concomitant]

REACTIONS (1)
  - Full blood count decreased [None]
